FAERS Safety Report 4439312-4 (Version None)
Quarter: 2004Q3

REPORT INFORMATION
  Report Type: 
  Country: None (occurrence: None)
  Receive Date: 20040901
  Receipt Date: 20040823
  Transmission Date: 20050211
  Serious: Yes (Hospitalization)
  Sender: FDA-Public Use
  Company Number: NO-MERCK-0408NOR00014

PATIENT
  Age: 77 Year
  Sex: Female

DRUGS (2)
  1. ASPIRIN AND MAGNESIUM OXIDE [Suspect]
     Indication: CORONARY ARTERY DISEASE
     Route: 048
  2. VIOXX [Suspect]
     Indication: PAIN
     Route: 048
     Dates: start: 20040715

REACTIONS (3)
  - GASTROINTESTINAL ULCER [None]
  - HAEMOGLOBIN DECREASED [None]
  - MELAENA [None]
